FAERS Safety Report 9648994 (Version 3)
Quarter: 2014Q1

REPORT INFORMATION
  Report Type: Report from Study
  Country: US (occurrence: US)
  Receive Date: 20131028
  Receipt Date: 20140224
  Transmission Date: 20141002
  Serious: Yes (Other)
  Sender: FDA-Public Use
  Company Number: US-BAXTER-2013BAX041913

PATIENT
  Sex: Female
  Weight: 98.06 kg

DRUGS (7)
  1. GAMMAGARD LIQUID [Suspect]
     Indication: HYPOGAMMAGLOBULINAEMIA
     Dosage: 10G/100ML
     Route: 058
     Dates: start: 20130922, end: 20130922
  2. GAMMAGARD LIQUID [Suspect]
     Dosage: 10G/100ML
     Route: 058
     Dates: start: 20130929, end: 20130929
  3. GAMMAGARD LIQUID [Suspect]
     Dosage: 10G/100ML
     Route: 058
     Dates: start: 201304
  4. ATENOLOL [Concomitant]
     Indication: HYPERTENSION
     Route: 048
  5. PAXIL [Concomitant]
     Indication: DEPRESSION
     Route: 048
     Dates: start: 201301
  6. XANAX [Concomitant]
     Indication: ANXIETY
     Route: 048
  7. NEXIUM [Concomitant]
     Indication: GASTROOESOPHAGEAL REFLUX DISEASE
     Route: 048

REACTIONS (2)
  - Sinusitis [Recovered/Resolved]
  - Therapeutic response unexpected [Unknown]
